FAERS Safety Report 12873261 (Version 1)
Quarter: 2016Q4

REPORT INFORMATION
  Report Type: Spontaneous
  Country: US (occurrence: US)
  Receive Date: 20161021
  Receipt Date: 20161021
  Transmission Date: 20170207
  Serious: Yes (Other)
  Sender: FDA-Public Use
  Company Number: US-JNJCP-30000357524

PATIENT
  Sex: Female
  Weight: 82 kg

DRUGS (1)
  1. AVEENO POSITIVELY RADIANT CC BROAD SPECTRUM SPF30 - FAIR TO LIGHT [Suspect]
     Active Substance: HOMOSALATE\OCTINOXATE\OCTISALATE\OXYBENZONE
     Indication: DRY SKIN PROPHYLAXIS
     Dosage: DIME SIZE AMOUNT ONCE DAILY
     Route: 061

REACTIONS (3)
  - Application site papules [Recovered/Resolved]
  - Application site rash [Recovered/Resolved]
  - Application site dryness [Recovered/Resolved]
